FAERS Safety Report 18190605 (Version 5)
Quarter: 2022Q2

REPORT INFORMATION
  Report Type: Report from Study
  Country: US (occurrence: US)
  Receive Date: 20200825
  Receipt Date: 20220527
  Transmission Date: 20220721
  Serious: Yes (Other)
  Sender: FDA-Public Use
  Company Number: NVSC2020US233350

PATIENT
  Sex: Female

DRUGS (1)
  1. GILENYA [Suspect]
     Active Substance: FINGOLIMOD HYDROCHLORIDE
     Indication: Multiple sclerosis
     Dosage: 0.5 MG, QD
     Route: 048
     Dates: start: 20151222

REACTIONS (6)
  - Neck crushing [Unknown]
  - Dysphonia [Unknown]
  - Concussion [Recovering/Resolving]
  - Ill-defined disorder [Unknown]
  - Head titubation [Unknown]
  - Neck pain [Unknown]
